FAERS Safety Report 6024839-4 (Version None)
Quarter: 2008Q4

REPORT INFORMATION
  Report Type: 
  Country: None (occurrence: None)
  Receive Date: 20081231
  Receipt Date: 20081230
  Transmission Date: 20090506
  Serious: Yes (Other)
  Sender: FDA-Public Use
  Company Number: US-BAYER-200813816BCC

PATIENT
  Age: 81 Year
  Sex: Male
  Weight: 88 kg

DRUGS (8)
  1. ASPIRIN [Suspect]
     Indication: ISCHAEMIC HEART DISEASE PROPHYLAXIS
     Dosage: TOTAL DAILY DOSE: 162 MG  UNIT DOSE: 81 MG
     Route: 048
     Dates: start: 20030101
  2. AVAPRO [Concomitant]
  3. NEXIUM [Concomitant]
  4. ACCUPRIL [Concomitant]
  5. LIPITOR [Concomitant]
  6. TRAZODONE [Concomitant]
  7. TRICOR [Concomitant]
  8. TOPROL-XL [Concomitant]

REACTIONS (2)
  - HAEMOGLOBIN DECREASED [None]
  - INTESTINAL ULCER [None]
